FAERS Safety Report 9768476 (Version 1)
Quarter: 2013Q4

REPORT INFORMATION
  Report Type: Spontaneous
  Country: FR (occurrence: FR)
  Receive Date: 20131217
  Receipt Date: 20131217
  Transmission Date: 20140711
  Serious: Yes (Other)
  Sender: FDA-Public Use
  Company Number: FR-ASTRAZENECA-2013SE89830

PATIENT
  Age: 400 Month
  Sex: Male

DRUGS (9)
  1. XEROQUEL [Suspect]
     Route: 048
     Dates: start: 201305, end: 20131120
  2. XEROQUEL [Suspect]
     Route: 048
     Dates: start: 20131121, end: 20131129
  3. BECOTIDE [Concomitant]
  4. VENTOLINE [Concomitant]
  5. MIANSERIN [Concomitant]
  6. ZOPICLONE [Concomitant]
  7. ALPRAZOLAM [Concomitant]
  8. VALIUM [Concomitant]
  9. NOCTAMIDE [Concomitant]

REACTIONS (3)
  - Rash papulosquamous [Not Recovered/Not Resolved]
  - Erythema [Not Recovered/Not Resolved]
  - Pruritus [Not Recovered/Not Resolved]
